FAERS Safety Report 13821852 (Version 1)
Quarter: 2017Q3

REPORT INFORMATION
  Report Type: Report from Study
  Country: None (occurrence: BR)
  Receive Date: 20170801
  Receipt Date: 20170801
  Transmission Date: 20171127
  Serious: Yes (Disabling, Other)
  Sender: FDA-Public Use
  Company Number: BR-ABBVIE-16K-020-1694310-00

PATIENT
  Sex: Female
  Weight: 70 kg

DRUGS (8)
  1. HUMIRA [Suspect]
     Active Substance: ADALIMUMAB
     Indication: RHEUMATOID ARTHRITIS
     Route: 058
     Dates: start: 20160324
  2. METFORMIN HYDROCHLORIDE. [Concomitant]
     Active Substance: METFORMIN HYDROCHLORIDE
     Indication: DIABETES MELLITUS
     Route: 048
     Dates: start: 20070101
  3. AMLODIPINE [Concomitant]
     Active Substance: AMLODIPINE BESYLATE
     Indication: BLOOD PRESSURE ABNORMAL
     Route: 048
     Dates: start: 20140101
  4. DEFLAZACORT [Suspect]
     Active Substance: DEFLAZACORT
     Route: 048
     Dates: end: 201706
  5. RITMONORM [Concomitant]
     Active Substance: PROPAFENONE HYDROCHLORIDE
     Indication: ARRHYTHMIA
     Dosage: 1/5 OF TABLET DAILY
     Route: 048
     Dates: start: 20140101
  6. DEFLAZACORT [Suspect]
     Active Substance: DEFLAZACORT
     Indication: POLYMYOSITIS
     Route: 048
     Dates: start: 201605
  7. XELJANZ [Concomitant]
     Active Substance: TOFACITINIB CITRATE
     Indication: DERMATOMYOSITIS
     Route: 048
  8. OCUPRESS [Concomitant]
     Active Substance: CARTEOLOL HYDROCHLORIDE
     Indication: GLAUCOMA
     Route: 050
     Dates: start: 20150101

REACTIONS (14)
  - Eye pruritus [Recovered/Resolved]
  - Dermatomyositis [Recovered/Resolved]
  - Tremor [Recovered/Resolved]
  - Aspartate aminotransferase increased [Recovering/Resolving]
  - Intraocular pressure fluctuation [Recovered/Resolved]
  - Pain in extremity [Unknown]
  - Injection site hypersensitivity [Unknown]
  - Demyelinating polyneuropathy [Not Recovered/Not Resolved]
  - Injection site pruritus [Unknown]
  - Blood thyroid stimulating hormone increased [Recovering/Resolving]
  - Alanine aminotransferase increased [Recovering/Resolving]
  - Hypokinesia [Unknown]
  - Gait disturbance [Not Recovered/Not Resolved]
  - Pruritus generalised [Recovered/Resolved]

NARRATIVE: CASE EVENT DATE: 2016
